FAERS Safety Report 18927922 (Version 2)
Quarter: 2021Q1

REPORT INFORMATION
  Report Type: Report from Study
  Country: US (occurrence: US)
  Receive Date: 20210223
  Receipt Date: 20210312
  Transmission Date: 20210420
  Serious: Yes (Hospitalization)
  Sender: FDA-Public Use
  Company Number: US-ROCHE-2767477

PATIENT
  Age: 50 Year
  Sex: Male
  Weight: 111.6 kg

DRUGS (4)
  1. CEFEPIME [Concomitant]
     Active Substance: CEFEPIME HYDROCHLORIDE
  2. VANCOMYCIN [Concomitant]
     Active Substance: VANCOMYCIN
  3. OBINUTUZUMAB. [Suspect]
     Active Substance: OBINUTUZUMAB
     Indication: CHRONIC LYMPHOCYTIC LEUKAEMIA
     Dosage: 100 MG IV ON DAY 1, CYCLE 1?900 MG IV ON DAY 2, CYCLE 1?1000 MG IV ON DAY 8, CYCLE 1?1000 MG IV ON D
     Route: 042
     Dates: start: 20201216, end: 20201216
  4. IBRUTINIB [Suspect]
     Active Substance: IBRUTINIB
     Indication: CHRONIC LYMPHOCYTIC LEUKAEMIA
     Dosage: CYCLE = 28 DAYS?ON 12/JAN/2021, RECEIVED MOST RECENT DOSE OF IBRUTINIB
     Route: 065
     Dates: start: 20201217, end: 20210112

REACTIONS (3)
  - Pain in extremity [Not Recovered/Not Resolved]
  - Anaemia [Not Recovered/Not Resolved]
  - Osteomyelitis [Not Recovered/Not Resolved]

NARRATIVE: CASE EVENT DATE: 20210113
